FAERS Safety Report 18691052 (Version 2)
Quarter: 2022Q4

REPORT INFORMATION
  Report Type: Report from Study
  Country: CA (occurrence: CA)
  Receive Date: 20210101
  Receipt Date: 20221217
  Transmission Date: 20230112
  Serious: Yes (Other)
  Sender: FDA-Public Use
  Company Number: CA-SHIRE-CA202006690

PATIENT
  Age: 76 Year
  Sex: Female

DRUGS (45)
  1. HUMAN IMMUNOGLOBULIN G [Suspect]
     Active Substance: HUMAN IMMUNOGLOBULIN G
     Indication: Primary immunodeficiency syndrome
     Dosage: 50 GRAM
     Route: 065
     Dates: start: 20180801
  2. HUMAN IMMUNOGLOBULIN G [Suspect]
     Active Substance: HUMAN IMMUNOGLOBULIN G
     Dosage: 10 GRAM, 1/WEEK
     Route: 050
     Dates: start: 20180801
  3. AMLODIPINE [Concomitant]
     Active Substance: AMLODIPINE BESYLATE
     Indication: Product used for unknown indication
  4. LEVOTHYROXINE [Concomitant]
     Active Substance: LEVOTHYROXINE
  5. CELEBREX [Concomitant]
     Active Substance: CELECOXIB
     Indication: Product used for unknown indication
  6. CELEBREX [Concomitant]
     Active Substance: CELECOXIB
     Indication: Product used for unknown indication
  7. Dexalant [Concomitant]
     Indication: Product used for unknown indication
  8. Dexalant [Concomitant]
     Indication: Product used for unknown indication
  9. ACTONEL [Concomitant]
     Active Substance: RISEDRONATE SODIUM
     Indication: Product used for unknown indication
  10. ACTONEL [Concomitant]
     Active Substance: RISEDRONATE SODIUM
     Indication: Product used for unknown indication
  11. ASPIRIN [Concomitant]
     Active Substance: ASPIRIN
     Indication: Product used for unknown indication
     Dosage: 81 MILLIGRAM, QOD
  12. REACTINE [Concomitant]
     Indication: Product used for unknown indication
  13. REACTINE [Concomitant]
     Indication: Product used for unknown indication
  14. ZOPICLONE [Concomitant]
     Active Substance: ZOPICLONE
     Indication: Product used for unknown indication
  15. ZOPICLONE [Concomitant]
     Active Substance: ZOPICLONE
     Indication: Product used for unknown indication
  16. ZANTAC [Concomitant]
     Active Substance: RANITIDINE HYDROCHLORIDE
     Indication: Product used for unknown indication
  17. ZANTAC [Concomitant]
     Active Substance: RANITIDINE HYDROCHLORIDE
     Indication: Product used for unknown indication
  18. SODIUM CHLORIDE [Concomitant]
     Active Substance: SODIUM CHLORIDE
     Indication: Product used for unknown indication
  19. ALVESTO [Concomitant]
     Indication: Product used for unknown indication
     Dosage: UNK, BID
  20. ALBUTEROL [Concomitant]
     Active Substance: ALBUTEROL
     Indication: Chronic obstructive pulmonary disease
  21. ALBUTEROL [Concomitant]
     Active Substance: ALBUTEROL
     Indication: Asthma
  22. MINERALS\VITAMINS [Concomitant]
     Active Substance: MINERALS\VITAMINS
     Indication: Product used for unknown indication
  23. IRBESARTAN [Concomitant]
     Active Substance: IRBESARTAN
     Indication: Hypertension
     Dosage: 75 MILLIGRAM, QD
  24. HYDROXYCHLOROQUINE [Concomitant]
     Active Substance: HYDROXYCHLOROQUINE
     Indication: Rheumatoid arthritis
     Dosage: 400 MILLIGRAM, QD
  25. PROLIA [Concomitant]
     Active Substance: DENOSUMAB
     Indication: Osteoporosis
  26. CURCUMIN [Concomitant]
     Active Substance: CURCUMIN
     Indication: Inflammation
     Dosage: 400 MILLIGRAM, QD
  27. VITAMIN B COMPLEX NOS [Concomitant]
     Active Substance: CYANOCOBALAMIN\PYRIDOXINE HYDROCHLORIDE\RIBOFLAVIN\SODIUM PANTOTHENATE\THIAMINE HYDROCHLORIDE\VITAMI
     Indication: Infection
     Dosage: UNK UNK, QD
  28. CALCIUM [Concomitant]
     Active Substance: CALCIUM
     Indication: Osteoporosis
     Dosage: 3000 INTERNATIONAL UNIT
  29. VITAMIN D3 [Concomitant]
     Active Substance: CHOLECALCIFEROL
     Indication: Osteoporosis
     Dosage: 1200 MILLIGRAM
  30. MAGNESIUM CITRATE [Concomitant]
     Active Substance: MAGNESIUM CITRATE
     Indication: Muscle spasms
     Dosage: UNK UNK, QD
  31. GLUCOSAMINE [Concomitant]
     Active Substance: GLUCOSAMINE
     Indication: Arthritis
     Dosage: 400 MILLIGRAM, TID
  32. CHONDROITIN [Concomitant]
     Active Substance: CHONDROITIN
     Indication: Arthritis
     Dosage: 400 MILLIGRAM, TID
  33. CANNABIS SATIVA SUBSP. INDICA TOP [Concomitant]
     Active Substance: CANNABIS SATIVA SUBSP. INDICA TOP
     Indication: Sleep disorder
     Dosage: 500 MILLIGRAM, TID
  34. CANNABIDIOL [Concomitant]
     Active Substance: CANNABIDIOL
     Indication: Inflammation
     Dosage: 1 MILLILITER, QD
  35. MSM + GLUCOSAMINE [Concomitant]
     Indication: Arthritis
  36. DIETARY SUPPLEMENT\PROBIOTICS [Concomitant]
     Active Substance: DIETARY SUPPLEMENT\PROBIOTICS
     Indication: Dyspepsia
     Dosage: UNK UNK, QD
  37. OMNARIS [Concomitant]
     Active Substance: CICLESONIDE
     Indication: Sinusitis
     Dosage: 500 MICROGRAM
  38. SALINE KARE [Concomitant]
     Indication: Sinusitis
     Dosage: UNK UNK, QD
  39. LEVOFLOXACIN [Concomitant]
     Active Substance: LEVOFLOXACIN
     Dosage: 750 MILLIGRAM
     Dates: start: 20170228
  40. PULMICORT TURBUHALER [Concomitant]
     Active Substance: BUDESONIDE
     Indication: Sinusitis
     Dosage: UNK UNK, BID
  41. AZITHROMYCIN [Concomitant]
     Active Substance: AZITHROMYCIN
     Dosage: 500 MILLIGRAM
  42. AZITHROMYCIN [Concomitant]
     Active Substance: AZITHROMYCIN
     Dosage: 250 MILLIGRAM, QD
     Dates: start: 20170331
  43. PREDNISONE [Concomitant]
     Active Substance: PREDNISONE
     Dosage: 750 MILLIGRAM
     Dates: start: 20170728
  44. CEFUROXIME [Concomitant]
     Active Substance: CEFUROXIME
     Dosage: 500 MILLIGRAM, QD
     Dates: start: 20171030
  45. CEFUROXIME [Concomitant]
     Active Substance: CEFUROXIME
     Dosage: 250 MILLIGRAM
     Dates: start: 20171030

REACTIONS (4)
  - Diverticulitis [Unknown]
  - Arthritis [Unknown]
  - Irritable bowel syndrome [Unknown]
  - Ankle fracture [Unknown]

NARRATIVE: CASE EVENT DATE: 20221101
